FAERS Safety Report 7981165 (Version 2)
Quarter: 2012Q4

REPORT INFORMATION
  Report Type: 
  Country: CA (occurrence: CA)
  Receive Date: 20110608
  Receipt Date: 20121111
  Transmission Date: 20130627
  Serious: Yes (Other)
  Sender: FDA-Public Use
  Company Number: PHMT2006CA00767

PATIENT
  Sex: Female

DRUGS (6)
  1. SANDOSTATIN LAR [Suspect]
     Indication: CARCINOID TUMOUR
     Dosage: 30 mg, QMO
     Route: 030
     Dates: start: 20050519, end: 20060913
  2. SANDOSTATIN LAR [Suspect]
     Dosage: 20 mg, every 4 weeks
     Dates: start: 20050519, end: 20060913
  3. FOSAMAX [Concomitant]
  4. HYDROCHLOROTHIAZIDE [Concomitant]
  5. NADOLOL [Concomitant]
  6. PARIET [Concomitant]

REACTIONS (16)
  - Transient ischaemic attack [Unknown]
  - Blood pressure increased [Unknown]
  - Weight increased [Unknown]
  - Weight decreased [Unknown]
  - Pain [Unknown]
  - Ascites [Unknown]
  - Oedema peripheral [Unknown]
  - Heart rate decreased [Unknown]
  - Blood glucose increased [Unknown]
  - Injection site pain [Unknown]
  - Diarrhoea [Unknown]
  - Frequent bowel movements [Unknown]
  - Flatulence [Unknown]
  - Nausea [Unknown]
  - Tachycardia [Unknown]
  - Asthenia [Unknown]
